FAERS Safety Report 8263141-7 (Version None)
Quarter: 2012Q1

REPORT INFORMATION
  Report Type: 
  Country: None (occurrence: None)
  Receive Date: 20120227
  Receipt Date: 20110414
  Transmission Date: 20120608
  Serious: Yes (Other)
  Sender: FDA-Public Use
  Company Number: PHHY2011US33492

PATIENT
  Sex: Female
  Weight: 73.5 kg

DRUGS (5)
  1. GLEEVEC [Suspect]
     Dosage: 400 MG, DAILY, ORAL
     Route: 048
  2. DORZOLAMIDE W/TIMOLOL (DORZOLAMIDE, TIMOLOL) [Concomitant]
  3. CALCIUM CARBONATE [Concomitant]
  4. XALATAN [Concomitant]
  5. CALCIUM CARBONATE [Concomitant]

REACTIONS (2)
  - GLAUCOMA [None]
  - DIARRHOEA [None]
